FAERS Safety Report 4554185-7 (Version None)
Quarter: 2005Q1

REPORT INFORMATION
  Report Type: 
  Country: None (occurrence: None)
  Receive Date: 20050118
  Receipt Date: 20050106
  Transmission Date: 20050727
  Serious: Yes (Hospitalization)
  Sender: FDA-Public Use
  Company Number: US-JNJFOC-20050101993

PATIENT
  Sex: Female
  Weight: 84.37 kg

DRUGS (11)
  1. INFLIXIMAB [Suspect]
     Indication: CROHN'S DISEASE
     Route: 042
  2. AZATHIOPRINE [Suspect]
     Indication: CROHN'S DISEASE
  3. MESALAMINE [Suspect]
     Indication: CROHN'S DISEASE
  4. NARCOTIC ANALGESICS [Suspect]
     Indication: CROHN'S DISEASE
  5. ANTIDEPRESSANTS [Suspect]
     Indication: CROHN'S DISEASE
  6. PREDNISONE [Suspect]
     Indication: CROHN'S DISEASE
  7. ANTI-HISTAMINE TAB [Concomitant]
     Indication: PREMEDICATION
  8. ACETAMINOPHEN [Concomitant]
  9. ACETAMINOPHEN [Concomitant]
     Indication: PREMEDICATION
  10. ACETAMINOPHEN [Concomitant]
  11. ACETAMINOPHEN [Concomitant]

REACTIONS (6)
  - DEHYDRATION [None]
  - DIARRHOEA [None]
  - INFUSION RELATED REACTION [None]
  - NAUSEA [None]
  - PAIN [None]
  - RECTAL HAEMORRHAGE [None]
